FAERS Safety Report 4634149-5 (Version None)
Quarter: 2005Q2

REPORT INFORMATION
  Report Type: 
  Country: None (occurrence: None)
  Receive Date: 20050413
  Receipt Date: 20050408
  Transmission Date: 20051028
  Serious: Yes (Life-Threatening, Disabling)
  Sender: FDA-Public Use
  Company Number: US-MERCK-0504USA01234

PATIENT
  Age: 62 Year
  Sex: Male

DRUGS (2)
  1. VIOXX [Suspect]
     Indication: RHEUMATOID ARTHRITIS
     Route: 048
     Dates: end: 20040930
  2. GLUCOTROL [Concomitant]
     Route: 065

REACTIONS (3)
  - ARRHYTHMIA [None]
  - ARTERIOSCLEROTIC RETINOPATHY [None]
  - CEREBROVASCULAR ACCIDENT [None]
